FAERS Safety Report 18879131 (Version 4)
Quarter: 2021Q2

REPORT INFORMATION
  Report Type: Report from Study
  Country: US (occurrence: US)
  Receive Date: 20210211
  Receipt Date: 20210405
  Transmission Date: 20210717
  Serious: Yes (Other)
  Sender: FDA-Public Use
  Company Number: NVSC2021US024297

PATIENT
  Sex: Female

DRUGS (2)
  1. KISQALI [Suspect]
     Active Substance: RIBOCICLIB
     Indication: PRODUCT USED FOR UNKNOWN INDICATION
     Dosage: UNK
     Route: 048
  2. FEMARA [Suspect]
     Active Substance: LETROZOLE
     Indication: PRODUCT USED FOR UNKNOWN INDICATION
     Dosage: UNK
     Route: 048

REACTIONS (11)
  - Carbohydrate antigen 15-3 increased [Unknown]
  - Blood count abnormal [Unknown]
  - Hepatic mass [Unknown]
  - White blood cell count increased [Unknown]
  - Aspartate aminotransferase increased [Unknown]
  - Lung neoplasm malignant [Unknown]
  - Product dose omission issue [Unknown]
  - Constipation [Unknown]
  - Neuropathy peripheral [Unknown]
  - Metastases to bone [Unknown]
  - Abdominal distension [Unknown]
